FAERS Safety Report 4812484-5 (Version None)
Quarter: 2005Q4

REPORT INFORMATION
  Report Type: 
  Country: None (occurrence: None)
  Receive Date: 20051028
  Receipt Date: 20050204
  Transmission Date: 20060501
  Serious: No
  Sender: FDA-Public Use
  Company Number: US-GLAXOSMITHKLINE-A0543968A

PATIENT
  Age: 39 Year
  Sex: Male

DRUGS (2)
  1. SERETIDE [Suspect]
     Dosage: 1PUFF TWICE PER DAY
     Dates: start: 20020101
  2. ALBUTEROL [Concomitant]
     Route: 065

REACTIONS (2)
  - BRONCHOSPASM [None]
  - DRUG INEFFECTIVE [None]
